FAERS Safety Report 16377832 (Version 1)
Quarter: 2019Q2

REPORT INFORMATION
  Report Type: Spontaneous
  Country: US (occurrence: US)
  Receive Date: 20190531
  Receipt Date: 20190531
  Transmission Date: 20190711
  Serious: No
  Sender: FDA-Public Use
  Company Number: US-GLAXOSMITHKLINE-US2019093262

PATIENT
  Sex: Female

DRUGS (1)
  1. BENLYSTA [Suspect]
     Active Substance: BELIMUMAB
     Indication: PRODUCT USED FOR UNKNOWN INDICATION
     Dosage: UNK
     Route: 058
     Dates: start: 2018

REACTIONS (9)
  - Breast swelling [Unknown]
  - Haematoma [Unknown]
  - Abscess drainage [Unknown]
  - Condition aggravated [Unknown]
  - Pyrexia [Unknown]
  - Post procedural infection [Unknown]
  - Mammoplasty [Unknown]
  - Breast prosthesis user [Unknown]
  - Pain [Unknown]
